FAERS Safety Report 8248199-3 (Version None)
Quarter: 2012Q1

REPORT INFORMATION
  Report Type: 
  Country: None (occurrence: None)
  Receive Date: 20120330
  Receipt Date: 20120328
  Transmission Date: 20120608
  Serious: Yes (Death)
  Sender: FDA-Public Use
  Company Number: PHHY2012US026811

PATIENT
  Age: 96 Year

DRUGS (1)
  1. BUFFERIN [Suspect]

REACTIONS (1)
  - DEATH [None]
